FAERS Safety Report 9886392 (Version 1)
Quarter: 2014Q1

REPORT INFORMATION
  Report Type: Spontaneous
  Country: IT (occurrence: IT)
  Receive Date: 20140210
  Receipt Date: 20140210
  Transmission Date: 20141002
  Serious: Yes (Other)
  Sender: FDA-Public Use
  Company Number: IT-PFIZER INC-2014036599

PATIENT
  Age: 79 Year
  Sex: Male

DRUGS (8)
  1. DEPO-MEDROL [Suspect]
     Indication: OSTEOARTHRITIS
     Dosage: 1 DF, TOTAL
     Route: 014
     Dates: start: 20140128, end: 20140128
  2. LIDOCAINE [Suspect]
     Route: 014
  3. PARIET [Concomitant]
  4. ENAPREN [Concomitant]
  5. NORVASC [Concomitant]
  6. CARDIOASPIRIN [Concomitant]
  7. PROVISACOR [Concomitant]
  8. LASIX [Concomitant]

REACTIONS (5)
  - Bradycardia [Recovered/Resolved]
  - Hyperhidrosis [Recovered/Resolved]
  - Hypotension [Recovered/Resolved]
  - Syncope [Recovered/Resolved]
  - Vomiting [Recovered/Resolved]
